FAERS Safety Report 10608444 (Version 1)
Quarter: 2014Q4

REPORT INFORMATION
  Report Type: Other
  Country: DE (occurrence: DE)
  Receive Date: 20141125
  Receipt Date: 20141125
  Transmission Date: 20150529
  Serious: Yes (Congenital Anomaly)
  Sender: FDA-Public Use
  Company Number: DE-MYLANLABS-2014M1011583

PATIENT

DRUGS (7)
  1. CITALOPRAM [Concomitant]
     Active Substance: CITALOPRAM HYDROBROMIDE
     Indication: DEPRESSION
     Dosage: UNK
     Route: 064
     Dates: start: 20140709, end: 20140825
  2. DOXEPIN [Suspect]
     Active Substance: DOXEPIN
     Indication: DEPRESSION
     Dosage: 75 [MG/D (3 X 25 MG/D) ]
     Route: 064
     Dates: start: 20140430, end: 20140609
  3. ATOSIL [Concomitant]
     Active Substance: PROMETHAZINE HYDROCHLORIDE
     Indication: DEPRESSION
     Dosage: 100 [MG/D (25-25-50 MG/D) ]
     Route: 064
     Dates: start: 20140611, end: 20140825
  4. ERGENYL CHRONO [Suspect]
     Active Substance: VALPROIC ACID
     Indication: BORDERLINE PERSONALITY DISORDER
     Dosage: 1400 [MG/D (600-0-800 MG/D) ]
     Route: 064
     Dates: start: 20140430, end: 20140609
  5. TRUXAL [Suspect]
     Active Substance: CHLORPROTHIXENE
     Indication: DEPRESSION
     Dosage: 25 [MG/D (B.BED.) ]
     Route: 064
     Dates: start: 20140430, end: 20140609
  6. OMEPRAZOL [Concomitant]
     Active Substance: OMEPRAZOLE
     Indication: GASTRITIS PROPHYLAXIS
     Dosage: UNK
     Route: 064
     Dates: start: 20140430, end: 20140825
  7. SPEED [Concomitant]
     Active Substance: UNSPECIFIED INGREDIENT
     Indication: DRUG DEPENDENCE
     Dosage: UNK
     Route: 064
     Dates: start: 20140430, end: 20140609

REACTIONS (3)
  - Foetal exposure during pregnancy [Unknown]
  - Spina bifida [Not Recovered/Not Resolved]
  - Talipes [Not Recovered/Not Resolved]
